FAERS Safety Report 15095517 (Version 1)
Quarter: 2018Q3

REPORT INFORMATION
  Report Type: Spontaneous
  Country: US (occurrence: US)
  Receive Date: 20180702
  Receipt Date: 20180702
  Transmission Date: 20181010
  Serious: No
  Sender: FDA-Public Use
  Company Number: US-TEVA-2018-US-916945

PATIENT
  Age: 56 Year
  Sex: Female

DRUGS (1)
  1. QVAR [Suspect]
     Active Substance: BECLOMETHASONE DIPROPIONATE
     Indication: DYSPNOEA
     Dosage: 1 PUFF 2 DAILY
     Route: 065
     Dates: start: 2017

REACTIONS (4)
  - Infrequent bowel movements [Unknown]
  - Flatulence [Unknown]
  - Abnormal faeces [Unknown]
  - Constipation [Unknown]

NARRATIVE: CASE EVENT DATE: 2017
